FAERS Safety Report 24459128 (Version 1)
Quarter: 2024Q4

REPORT INFORMATION
  Report Type: Report from Study
  Country: CA (occurrence: CA)
  Receive Date: 20241018
  Receipt Date: 20241018
  Transmission Date: 20250115
  Serious: No
  Sender: ROCHE
  Company Number: CA-ROCHE-3514543

PATIENT
  Sex: Female

DRUGS (12)
  1. RITUXAN [Suspect]
     Active Substance: RITUXIMAB
     Indication: Myasthenia gravis
     Dosage: DRUG DOSE FIRST ADMINISTERED IS 710 MG MILLIGRAM(S)
     Route: 042
     Dates: start: 20200331, end: 20200420
  2. RITUXAN [Suspect]
     Active Substance: RITUXIMAB
     Dosage: FOUR WEEKLY DOSES
     Route: 042
     Dates: start: 20201026, end: 20240115
  3. AZATHIOPRINE [Concomitant]
     Active Substance: AZATHIOPRINE
  4. BENADRYL [Concomitant]
     Active Substance: DIPHENHYDRAMINE HYDROCHLORIDE
     Indication: Premedication
     Route: 048
     Dates: start: 20200413
  5. CITALOPRAM [Concomitant]
     Active Substance: CITALOPRAM
  6. FUROSEMIDE [Concomitant]
     Active Substance: FUROSEMIDE
  7. IRBESARTAN [Concomitant]
     Active Substance: IRBESARTAN
  8. METFORMIN [Concomitant]
     Active Substance: METFORMIN HYDROCHLORIDE
  9. PREDNISONE [Concomitant]
     Active Substance: PREDNISONE
  10. ROSUVASTATIN [Concomitant]
     Active Substance: ROSUVASTATIN
  11. SEPTRA [Concomitant]
     Active Substance: SULFAMETHOXAZOLE\TRIMETHOPRIM
  12. TYLENOL [Concomitant]
     Active Substance: ACETAMINOPHEN
     Indication: Premedication
     Route: 048
     Dates: start: 20200413

REACTIONS (1)
  - Pneumonia [Not Recovered/Not Resolved]
